FAERS Safety Report 6987927-1 (Version None)
Quarter: 2010Q3

REPORT INFORMATION
  Report Type: 
  Country: None (occurrence: None)
  Receive Date: 20100916
  Receipt Date: 20100710
  Transmission Date: 20110219
  Serious: No
  Sender: FDA-Public Use
  Company Number: US-ABBOTT-10P-163-0656812-00

PATIENT
  Sex: Male
  Weight: 88.53 kg

DRUGS (1)
  1. TRILIPIX [Suspect]
     Indication: BLOOD CHOLESTEROL INCREASED
     Dates: start: 20100709, end: 20100710

REACTIONS (3)
  - NAUSEA [None]
  - PAIN [None]
  - PYREXIA [None]
